FAERS Safety Report 19642408 (Version 2)
Quarter: 2021Q3

REPORT INFORMATION
  Report Type: Other
  Country: JP (occurrence: JP)
  Receive Date: 20210731
  Receipt Date: 20210810
  Transmission Date: 20211014
  Serious: Yes (Hospitalization)
  Sender: FDA-Public Use
  Company Number: JP-B.BRAUN MEDICAL INC.-2114495

PATIENT
  Age: 57 Year
  Sex: Male

DRUGS (2)
  1. HEPARIN SODIUM IN DEXTROSE [Suspect]
     Active Substance: HEPARIN SODIUM
     Indication: THROMBOSIS
     Route: 042
  2. WARFARIN [Suspect]
     Active Substance: WARFARIN
     Route: 048

REACTIONS (1)
  - Drug ineffective [None]
